FAERS Safety Report 19484446 (Version 1)
Quarter: 2021Q3

REPORT INFORMATION
  Report Type: Report from Study
  Country: US (occurrence: US)
  Receive Date: 20210701
  Receipt Date: 20210701
  Transmission Date: 20211014
  Serious: Yes (Other)
  Sender: FDA-Public Use
  Company Number: US-INCYTE CORPORATION-2021IN005680

PATIENT

DRUGS (1)
  1. JAKAFI [Suspect]
     Active Substance: RUXOLITINIB
     Indication: MYELOFIBROSIS
     Dosage: 5MG TABS, 1/2 TAB, BID
     Route: 048
     Dates: start: 20210319, end: 20210616

REACTIONS (2)
  - Wrong technique in product usage process [Unknown]
  - Haemorrhage [Unknown]
